FAERS Safety Report 15017719 (Version 3)
Quarter: 2018Q4

REPORT INFORMATION
  Report Type: Report from Study
  Country: None (occurrence: AT)
  Receive Date: 20180615
  Receipt Date: 20181205
  Transmission Date: 20190204
  Serious: Yes (Life-Threatening, Hospitalization, Other)
  Sender: FDA-Public Use
  Company Number: AT-ABBVIE-18K-009-2386967-00

PATIENT
  Age: 70 Year
  Sex: Female
  Weight: 74 kg

DRUGS (2)
  1. DUODOPA [Suspect]
     Active Substance: CARBIDOPA\LEVODOPA
     Dosage: 16 THERAPY:?MD: 8ML, CR DAYTIME: 3.8ML/H, ED: 1.5ML
     Route: 050
     Dates: start: 2018
  2. DUODOPA [Suspect]
     Active Substance: CARBIDOPA\LEVODOPA
     Indication: PARKINSON^S DISEASE
     Dosage: 16 H THERAPY. MD: 10 ML CR DAYTIME: 3.3 ML/H ED. 1.5 ML, 3.5 ML/H CONTINUOUS
     Route: 050
     Dates: start: 20180611, end: 20181023

REACTIONS (9)
  - Peritonitis [Recovered/Resolved]
  - Abdominal rigidity [Unknown]
  - Perforation [Recovered/Resolved]
  - Abdominal pain lower [Not Recovered/Not Resolved]
  - On and off phenomenon [Recovering/Resolving]
  - Duodenal perforation [Recovering/Resolving]
  - Mental disorder [Unknown]
  - Small intestinal perforation [Not Recovered/Not Resolved]
  - Procedural pain [Unknown]

NARRATIVE: CASE EVENT DATE: 2018
